FAERS Safety Report 6469006-5 (Version None)
Quarter: 2009Q4

REPORT INFORMATION
  Report Type: 
  Country: None (occurrence: None)
  Receive Date: 20091203
  Receipt Date: 20091123
  Transmission Date: 20100525
  Serious: Yes (Hospitalization)
  Sender: FDA-Public Use
  Company Number: PHHY2009CA51838

PATIENT
  Sex: Female

DRUGS (7)
  1. ACLASTA [Suspect]
     Indication: OSTEOPOROSIS
     Dosage: 5 MG
     Dates: start: 20081126
  2. ACLASTA [Suspect]
     Dosage: 5 MG
     Dates: start: 20091123
  3. LEVOTHYROXINE SODIUM [Concomitant]
  4. ARTHROTEC [Concomitant]
  5. QUININE SULFATE [Concomitant]
  6. AMITRIPTYLINE [Concomitant]
  7. PARIET [Concomitant]

REACTIONS (2)
  - BLADDER CANCER [None]
  - SURGERY [None]
